FAERS Safety Report 4525444-9 (Version None)
Quarter: 2004Q4

REPORT INFORMATION
  Report Type: 
  Country: None (occurrence: None)
  Receive Date: 20041108
  Receipt Date: 20040310
  Transmission Date: 20050328
  Serious: Yes (Hospitalization, Other)
  Sender: FDA-Public Use
  Company Number: US-JNJFOC-20040608259

PATIENT
  Age: 2 Year
  Sex: Male

DRUGS (1)
  1. CHILDRENS TYLENOL LIQUID CHERRY (ACETAMINOPHEN) SUSPENSION [Suspect]
     Indication: DRUG USE FOR UNKNOWN INDICATION
     Dosage: APPROX 2880 MG ONCE PO
     Route: 048
     Dates: start: 20040309, end: 20040309

REACTIONS (1)
  - ACCIDENTAL EXPOSURE [None]
